FAERS Safety Report 8925111 (Version 1)
Quarter: 2012Q4

REPORT INFORMATION
  Report Type: 
  Country: FR (occurrence: FR)
  Receive Date: 20121126
  Receipt Date: 20121126
  Transmission Date: 20130627
  Serious: Yes (Life-Threatening, Hospitalization)
  Sender: FDA-Public Use
  Company Number: FR-ASTRAZENECA-2012SE88018

PATIENT
  Age: 54 Year
  Sex: Female

DRUGS (5)
  1. CRESTOR [Suspect]
     Route: 048
     Dates: end: 20121017
  2. METRONIDAZOLE\SPIRAMYCIN [Suspect]
     Indication: ENDOCARDITIS PROPHYLAXIS
     Route: 048
     Dates: start: 20121016, end: 20121017
  3. BI MISSILLOR [Suspect]
     Indication: ENDOCARDITIS PROPHYLAXIS
     Route: 048
     Dates: start: 20121001, end: 20121016
  4. APROVEL [Suspect]
     Route: 048
     Dates: end: 20121017
  5. LEVOTHYROX [Suspect]
     Route: 048
     Dates: end: 20121017

REACTIONS (1)
  - Anaphylactic shock [Recovered/Resolved]
